FAERS Safety Report 5822714-9 (Version None)
Quarter: 2008Q3

REPORT INFORMATION
  Report Type: 
  Country: None (occurrence: None)
  Receive Date: 20080725
  Receipt Date: 20071101
  Transmission Date: 20090109
  Serious: No
  Sender: FDA-Public Use
  Company Number: US-AMGEN-KDL251188

PATIENT
  Sex: Female
  Weight: 84 kg

DRUGS (7)
  1. PROCRIT [Suspect]
     Indication: ANAEMIA
     Dates: start: 20071031
  2. AMARYL [Concomitant]
     Route: 048
  3. ACTOS [Concomitant]
     Route: 048
  4. LISINOPRIL [Concomitant]
     Route: 048
  5. HYDROCHLOROTHIAZIDE [Concomitant]
     Route: 048
  6. LEVOTHYROXINE SODIUM [Concomitant]
     Route: 048
  7. REGLAN [Concomitant]
     Route: 048

REACTIONS (1)
  - BLOOD GLUCOSE DECREASED [None]
